FAERS Safety Report 7229147-1 (Version None)
Quarter: 2011Q1

REPORT INFORMATION
  Report Type: 
  Country: None (occurrence: None)
  Receive Date: 20110117
  Receipt Date: 20110110
  Transmission Date: 20110831
  Serious: Yes (Other)
  Sender: FDA-Public Use
  Company Number: FR-PFIZER INC-2010125988

PATIENT
  Age: 52 Year
  Sex: Male
  Weight: 94 kg

DRUGS (6)
  1. INSULIN [Concomitant]
     Dosage: 40 IU, 1X/DAY
     Route: 058
     Dates: start: 20101001
  2. TAHOR [Concomitant]
     Dosage: UNK
  3. CHAMPIX [Suspect]
     Indication: SMOKING CESSATION THERAPY
     Dosage: 1 MG, 2X/DAY
     Route: 048
     Dates: start: 20100501, end: 20100915
  4. LIPANTHYL [Concomitant]
     Dosage: UNK
  5. AMAREL [Concomitant]
     Dosage: UNK
  6. EUCREAS [Concomitant]
     Dosage: UNK

REACTIONS (1)
  - HYPERGLYCAEMIA [None]
